FAERS Safety Report 14603288 (Version 4)
Quarter: 2018Q2

REPORT INFORMATION
  Report Type: Spontaneous
  Country: ES (occurrence: ES)
  Receive Date: 20180306
  Receipt Date: 20180504
  Transmission Date: 20180711
  Serious: Yes (Life-Threatening, Hospitalization)
  Sender: FDA-Public Use
  Company Number: ES-009507513-1803ESP000293

PATIENT
  Age: 69 Year
  Sex: Female

DRUGS (7)
  1. ACETAZOLAMIDE. [Suspect]
     Active Substance: ACETAZOLAMIDE
     Indication: GLAUCOMA
     Dosage: UNK
     Route: 048
     Dates: start: 20180127, end: 20180205
  2. METFORMIN [Suspect]
     Active Substance: METFORMIN HYDROCHLORIDE
     Indication: DIABETES MELLITUS
     Dosage: UNK
     Route: 065
  3. SITAGLIPTIN PHOSPHATE [Suspect]
     Active Substance: SITAGLIPTIN PHOSPHATE
     Dosage: UNK
     Route: 065
  4. MANNITOL. [Suspect]
     Active Substance: MANNITOL
     Dosage: 2 BOLUS
     Route: 065
     Dates: start: 20180127
  5. SEVOFLURANE. [Suspect]
     Active Substance: SEVOFLURANE
     Indication: GENERAL ANAESTHESIA
     Dosage: 1.5 MAC
     Route: 055
     Dates: start: 20180205, end: 20180205
  6. ATORVASTATIN [Concomitant]
     Active Substance: ATORVASTATIN
     Dosage: UNK
     Route: 065
  7. RANITIDINE. [Concomitant]
     Active Substance: RANITIDINE
     Dosage: UNK
     Route: 065

REACTIONS (8)
  - Unresponsive to stimuli [Unknown]
  - Cardio-respiratory arrest [Not Recovered/Not Resolved]
  - Malaise [Unknown]
  - Cyanosis [Unknown]
  - Metabolic acidosis [Not Recovered/Not Resolved]
  - Nausea [Unknown]
  - Coma [Unknown]
  - Arrhythmia [Unknown]

NARRATIVE: CASE EVENT DATE: 20180206
